FAERS Safety Report 9087081 (Version 1)
Quarter: 2013Q1

REPORT INFORMATION
  Report Type: Spontaneous
  Country: US (occurrence: US)
  Receive Date: 20130131
  Receipt Date: 20130131
  Transmission Date: 20140127
  Serious: Yes (Other)
  Sender: FDA-Public Use
  Company Number: US-PFIZER INC-2013036668

PATIENT
  Sex: Male

DRUGS (6)
  1. LIPITOR [Suspect]
     Dosage: UNK
  2. GLUCOTROL [Suspect]
     Dosage: UNK
  3. GLUCOTROL XL [Suspect]
     Dosage: UNK
  4. ACCUPRIL [Suspect]
     Dosage: UNK
  5. DETROL LA [Suspect]
     Dosage: UNK
  6. EFFEXOR XR [Suspect]
     Dosage: UNK

REACTIONS (1)
  - Pneumonia [Unknown]
